FAERS Safety Report 9216912 (Version 1)
Quarter: 2013Q2

REPORT INFORMATION
  Report Type: Spontaneous
  Country: US (occurrence: US)
  Receive Date: 20130408
  Receipt Date: 20130408
  Transmission Date: 20140414
  Serious: No
  Sender: FDA-Public Use
  Company Number: US-GLAXOSMITHKLINE-A1006060A

PATIENT
  Age: 49 Year
  Sex: Female

DRUGS (1)
  1. POTIGA [Suspect]
     Indication: PARTIAL SEIZURES
     Dosage: 100MG THREE TIMES PER DAY
     Route: 048
     Dates: start: 201211, end: 201211

REACTIONS (2)
  - Rash [Recovered/Resolved]
  - Rash generalised [Recovered/Resolved]
